FAERS Safety Report 21352237 (Version 2)
Quarter: 2022Q4

REPORT INFORMATION
  Report Type: Spontaneous
  Country: CO (occurrence: CO)
  Receive Date: 20220920
  Receipt Date: 20221103
  Transmission Date: 20230112
  Serious: Yes (Other)
  Sender: FDA-Public Use
  Company Number: CO-AMGEN-COLSP2022113148

PATIENT
  Age: 72 Year
  Sex: Female
  Weight: 45 kg

DRUGS (13)
  1. MVASI [Suspect]
     Active Substance: BEVACIZUMAB-AWWB
     Indication: Adenocarcinoma of colon
     Dosage: 225 MILLIGRAM, CYCLE EVERY 30 DAYS
     Route: 042
     Dates: start: 20220610
  2. MVASI [Suspect]
     Active Substance: BEVACIZUMAB-AWWB
     Dosage: 229 MILLIGRAM, CYCLE EVERY 30 DAYS
     Route: 042
  3. NEULASTA [Suspect]
     Active Substance: PEGFILGRASTIM
     Indication: Adenocarcinoma of colon
     Dosage: 6 MILLIGRAM/0.6 MILLIGRAM, QD
     Route: 058
     Dates: start: 20220610
  4. LEUCOVORIN CALCIUM [Concomitant]
     Active Substance: LEUCOVORIN CALCIUM
     Indication: Adenocarcinoma of colon
     Dosage: 560 MILLIGRAM
     Route: 042
     Dates: start: 20220610
  5. OXALIPLATIN [Concomitant]
     Active Substance: OXALIPLATIN
     Indication: Adenocarcinoma of colon
     Dosage: 119 MILLIGRAM
     Route: 042
     Dates: start: 20220610
  6. FLUOROURACIL [Concomitant]
     Active Substance: FLUOROURACIL
     Indication: Adenocarcinoma of colon
     Dosage: 560 MILLIGRAM
     Route: 042
     Dates: start: 20220610
  7. DEXAMETHASONE PHOSPHATE [Concomitant]
     Active Substance: DEXAMETHASONE PHOSPHATE
     Indication: Adenocarcinoma of colon
     Dosage: 12 MILLIGRAM
     Route: 042
     Dates: start: 20220610
  8. DEXAMETHASONE PHOSPHATE [Concomitant]
     Active Substance: DEXAMETHASONE PHOSPHATE
     Dosage: 16 MILLIGRAM
     Route: 042
     Dates: start: 20220610
  9. PALONOSETRON [Concomitant]
     Active Substance: PALONOSETRON
     Indication: Adenocarcinoma of colon
     Dosage: 25 MILLIGRAM
     Route: 042
     Dates: start: 20220610
  10. FOSAPREPITANT [Concomitant]
     Active Substance: FOSAPREPITANT
     Indication: Adenocarcinoma of colon
     Dosage: 150 MILLIGRAM
     Route: 042
     Dates: start: 20220610
  11. FLUOROURACIL\LEUCOVORIN CALCIUM\OXALIPLATIN [Concomitant]
     Active Substance: FLUOROURACIL\LEUCOVORIN CALCIUM\OXALIPLATIN
     Indication: Adenocarcinoma of colon
     Dosage: CYCLE EVERY 30 DAYS
     Dates: start: 202201
  12. IRINOTECAN [Concomitant]
     Active Substance: IRINOTECAN
     Indication: Adenocarcinoma of colon
     Dosage: 253.8 MILLIGRAM, QD
     Route: 040
     Dates: start: 20220610
  13. ATROPINE SULFATE [Concomitant]
     Active Substance: ATROPINE SULFATE
     Dosage: 1 MILLIGRAM/MILLILITRE, QD
     Route: 030
     Dates: start: 20220610

REACTIONS (7)
  - Haematochezia [Not Recovered/Not Resolved]
  - Off label use [Not Recovered/Not Resolved]
  - Paraesthesia [Not Recovered/Not Resolved]
  - Dizziness [Recovering/Resolving]
  - Abdominal pain [Recovering/Resolving]
  - Nausea [Recovering/Resolving]
  - Diarrhoea [Recovering/Resolving]

NARRATIVE: CASE EVENT DATE: 20220610
